FAERS Safety Report 15297102 (Version 4)
Quarter: 2018Q4

REPORT INFORMATION
  Report Type: Spontaneous
  Country: US (occurrence: US)
  Receive Date: 20180820
  Receipt Date: 20181205
  Transmission Date: 20190204
  Serious: Yes (Hospitalization, Other)
  Sender: FDA-Public Use
  Company Number: US-SA-2018SA223743

PATIENT
  Age: 74 Year
  Sex: Female

DRUGS (2)
  1. KEVZARA [Suspect]
     Active Substance: SARILUMAB
     Indication: RHEUMATOID ARTHRITIS
     Dosage: 200 MG, QOW
     Route: 058
     Dates: start: 20180628, end: 201807
  2. KEVZARA [Suspect]
     Active Substance: SARILUMAB
     Dosage: 200 UNK
     Route: 058
     Dates: start: 2018

REACTIONS (8)
  - Groin pain [Unknown]
  - Skin infection [Unknown]
  - Pain [Unknown]
  - Adrenal insufficiency [Unknown]
  - Fluid retention [Unknown]
  - Rheumatoid arthritis [Unknown]
  - Skin erosion [Unknown]
  - Hypokinesia [Unknown]

NARRATIVE: CASE EVENT DATE: 2018
